FAERS Safety Report 17985490 (Version 1)
Quarter: 2020Q3

REPORT INFORMATION
  Report Type: Report from Study
  Country: KR (occurrence: KR)
  Receive Date: 20200706
  Receipt Date: 20200706
  Transmission Date: 20201103
  Serious: Yes (Hospitalization)
  Sender: FDA-Public Use
  Company Number: KR-JNJFOC-20200641343

PATIENT
  Age: 75 Year
  Sex: Male
  Weight: 50 kg

DRUGS (15)
  1. SUVAST [Concomitant]
     Dosage: 20 MG
     Route: 048
     Dates: start: 20200317
  2. LASIX [Concomitant]
     Active Substance: FUROSEMIDE
     Dosage: 0.5 DF
     Route: 048
     Dates: start: 20191029
  3. TOVAST [Concomitant]
     Active Substance: ATORVASTATIN CALCIUM
     Indication: CARDIAC FAILURE
     Dosage: 80 MG
     Route: 048
     Dates: start: 20200120, end: 20200120
  4. TOVAST [Concomitant]
     Active Substance: ATORVASTATIN CALCIUM
     Indication: CARDIAC FAILURE
     Dosage: 40 UNK
     Route: 048
     Dates: start: 20200121, end: 20200210
  5. PLAVITOR [Concomitant]
     Indication: CARDIAC FAILURE
     Dosage: 300 MG
     Route: 048
     Dates: start: 20200120, end: 20200120
  6. TENELIA [Concomitant]
     Active Substance: TENELIGLIPTIN
     Dosage: 20 MG
     Route: 048
     Dates: start: 20171220
  7. POLAPREZINC [Concomitant]
     Active Substance: POLAPREZINC
     Dosage: 75 MG
     Route: 048
     Dates: start: 20161214
  8. ASPIRIN. [Concomitant]
     Active Substance: ASPIRIN
     Indication: CARDIAC FAILURE
     Dosage: 100 MG
     Route: 048
     Dates: start: 20200121, end: 20200122
  9. ASPIRIN. [Concomitant]
     Active Substance: ASPIRIN
     Indication: CARDIAC FAILURE
     Dosage: 100 MG
     Route: 048
     Dates: start: 20200120, end: 20200120
  10. PLAVITOR [Concomitant]
     Indication: CARDIAC FAILURE
     Dosage: 75 UNK
     Route: 048
     Dates: start: 20200121, end: 20200122
  11. ENTRESTO [Concomitant]
     Active Substance: SACUBITRIL\VALSARTAN
     Dosage: 50 MG
     Route: 048
     Dates: start: 20200317
  12. RIVAROXABAN [Suspect]
     Active Substance: RIVAROXABAN
     Indication: THROMBOSIS PROPHYLAXIS
  13. NITROGLYCERIN. [Concomitant]
     Active Substance: NITROGLYCERIN
     Indication: CARDIAC FAILURE
     Dosage: 0.6 MG
     Route: 060
     Dates: start: 20200120, end: 20200120
  14. RIVAROXABAN [Suspect]
     Active Substance: RIVAROXABAN
     Indication: ATRIAL FIBRILLATION
     Dosage: 15 MG, QD
     Route: 048
     Dates: start: 20190911
  15. RIVAROXABAN [Suspect]
     Active Substance: RIVAROXABAN
     Indication: CEREBROVASCULAR ACCIDENT PROPHYLAXIS

REACTIONS (1)
  - Hypotension [Recovered/Resolved]

NARRATIVE: CASE EVENT DATE: 20200519
